FAERS Safety Report 8028928-4 (Version None)
Quarter: 2012Q1

REPORT INFORMATION
  Report Type: 
  Country: None (occurrence: None)
  Receive Date: 20120106
  Receipt Date: 20111230
  Transmission Date: 20120608
  Serious: No
  Sender: FDA-Public Use
  Company Number: US-BAYER-2011-123821

PATIENT
  Age: 75 Year
  Sex: Male
  Weight: 100 kg

DRUGS (5)
  1. ALEVE (CAPLET) [Suspect]
     Dosage: UNK
     Route: 048
     Dates: start: 20110101
  2. ASPIRIN [Concomitant]
     Dosage: 81 UNK, UNK
  3. CARAFATE [Concomitant]
  4. ALEVE (CAPLET) [Suspect]
     Indication: ARTHRITIS
     Dosage: UNK
     Route: 048
     Dates: start: 20110101, end: 20110101
  5. ANALGESICS [Concomitant]
     Dosage: UNK UNK, PRN

REACTIONS (4)
  - ABDOMINAL PAIN [None]
  - ABDOMINAL PAIN UPPER [None]
  - VISION BLURRED [None]
  - ABDOMINAL DISCOMFORT [None]
